FAERS Safety Report 5669638-8 (Version None)
Quarter: 2008Q1

REPORT INFORMATION
  Report Type: 
  Country: None (occurrence: None)
  Receive Date: 20080317
  Receipt Date: 20080305
  Transmission Date: 20080703
  Serious: Yes (Death, Life-Threatening, Hospitalization)
  Sender: FDA-Public Use
  Company Number: DE-WYE-H02336108

PATIENT
  Sex: Female

DRUGS (33)
  1. PANTOPRAZOLE SODIUM [Suspect]
     Indication: GASTRITIS
     Route: 065
     Dates: start: 20030314
  2. PANTOPRAZOLE SODIUM [Suspect]
     Indication: PROPHYLAXIS
  3. METOCLOPRAMIDE [Suspect]
     Indication: NAUSEA
     Dosage: DOSE, FORM AND FREQUENCY NOT SPECIFIED
     Route: 065
     Dates: start: 20030409
  4. METOCLOPRAMIDE [Suspect]
     Indication: VOMITING
  5. DIAZEPAM [Suspect]
     Indication: GRAND MAL CONVULSION
     Dosage: DOSE, FORM AND FREQUENCY NOT SPECIFIED
     Route: 065
     Dates: start: 20030331, end: 20030409
  6. TIMONIL [Suspect]
     Indication: GRAND MAL CONVULSION
     Route: 065
     Dates: start: 20030201, end: 20030416
  7. DIGITOXIN INJ [Suspect]
     Indication: SUPRAVENTRICULAR TACHYCARDIA
     Dosage: DOSE, FORM AND FREQUENCY NOT SPECIFIED
     Route: 065
     Dates: start: 20030304, end: 20030101
  8. DIGITOXIN INJ [Suspect]
     Indication: TACHYCARDIA PAROXYSMAL
  9. RIVOTRIL [Suspect]
     Indication: GRAND MAL CONVULSION
     Dosage: DOSE, FORM AND FREQUENCY NOT SPECIFIED
     Route: 065
     Dates: start: 20030331, end: 20030409
  10. BRONCHORETARD [Suspect]
     Route: 065
     Dates: start: 20030314, end: 20030101
  11. ISOPTIN [Suspect]
     Indication: TACHYCARDIA PAROXYSMAL
     Route: 065
     Dates: start: 20030314, end: 20030301
  12. ISOPTIN [Suspect]
     Indication: SUPRAVENTRICULAR TACHYCARDIA
     Route: 065
     Dates: start: 20030301, end: 20030331
  13. PULMICORT [Suspect]
     Indication: CHRONIC OBSTRUCTIVE PULMONARY DISEASE
     Route: 055
     Dates: start: 20030327, end: 20030301
  14. PULMICORT [Suspect]
     Route: 055
     Dates: start: 20030301, end: 20030329
  15. SEREVENT [Suspect]
     Indication: CHRONIC OBSTRUCTIVE PULMONARY DISEASE
     Route: 055
     Dates: start: 20030327, end: 20030329
  16. EUNERPAN [Suspect]
     Indication: SLEEP DISORDER
     Dosage: DOSE, FORM AND FREQUENCY NOT SPECIFIED
     Route: 065
     Dates: start: 20030327, end: 20030330
  17. MARCUMAR [Suspect]
     Indication: THROMBOSIS PROPHYLAXIS
     Dosage: DOSE FORM ^SOME/DAY^
     Route: 065
     Dates: start: 20030314, end: 20030406
  18. DECORTIN-H [Suspect]
     Indication: DERMATITIS
     Dosage: DOSE, FORM AND FREQUENCY NOT SPECIFIED
     Route: 065
     Dates: start: 20030320, end: 20030411
  19. DECORTIN-H [Suspect]
     Indication: RASH
  20. NOVODIGAL [Suspect]
     Indication: TACHYCARDIA PAROXYSMAL
     Route: 065
     Dates: start: 20030314, end: 20030416
  21. NOVODIGAL [Suspect]
     Indication: SUPRAVENTRICULAR TACHYCARDIA
  22. PLAVIX [Suspect]
     Indication: THROMBOSIS PROPHYLAXIS
     Dosage: DOSE FORM AND FREQUENCY NOT SPECIFIED
     Route: 065
     Dates: start: 20030228, end: 20030101
  23. DYTIDE [Suspect]
     Indication: ESSENTIAL HYPERTENSION
     Route: 065
     Dates: start: 20030314, end: 20030101
  24. TELFAST [Suspect]
     Indication: DERMATITIS
     Route: 065
     Dates: start: 20030409, end: 20030410
  25. TELFAST [Suspect]
     Indication: RASH
  26. INNOHEP [Suspect]
     Indication: THROMBOSIS PROPHYLAXIS
     Dosage: 0.4 ML, FREQUENCY NOT SPECIFIED
     Route: 058
     Dates: start: 20030409, end: 20030416
  27. CORNEREGEL [Suspect]
     Indication: CONJUNCTIVITIS
     Route: 065
     Dates: start: 20030412, end: 20030416
  28. BERODUAL [Suspect]
     Indication: CHRONIC OBSTRUCTIVE PULMONARY DISEASE
     Route: 065
     Dates: start: 20030412, end: 20030416
  29. ERGENYL - SLOW RELEASE [Suspect]
     Indication: EPILEPSY
     Route: 065
  30. FRISIUM [Suspect]
     Indication: EPILEPSY
     Dosage: DOSE FORM AND FREQUENCY NOT SPECIFIED
     Route: 065
     Dates: start: 20030416, end: 20030101
  31. REPELTIN FORTE [Suspect]
     Indication: PRURITUS
     Route: 065
     Dates: start: 20030410, end: 20030416
  32. TAVEGIL [Suspect]
     Indication: DERMATITIS
     Dosage: DOSE, FORM AND FREQUENCY NOT SPECIFIED
     Route: 048
     Dates: start: 20030403, end: 20030409
  33. TAVEGIL [Suspect]
     Indication: RASH

REACTIONS (1)
  - TOXIC EPIDERMAL NECROLYSIS [None]
